FAERS Safety Report 6784192-5 (Version None)
Quarter: 2010Q2

REPORT INFORMATION
  Report Type: 
  Country: None (occurrence: None)
  Receive Date: 20100622
  Receipt Date: 20100608
  Transmission Date: 20101027
  Serious: Yes (Hospitalization)
  Sender: FDA-Public Use
  Company Number: US-ELI_LILLY_AND_COMPANY-US201006002925

PATIENT
  Sex: Female
  Weight: 38.095 kg

DRUGS (2)
  1. ZYPREXA [Suspect]
     Indication: SCHIZOAFFECTIVE DISORDER
     Dosage: 15 MG, DAILY (1/D)
  2. ZYPREXA [Suspect]
     Dosage: 22.5 MG, DAILY (1/D)

REACTIONS (4)
  - AGITATION [None]
  - HOSPITALISATION [None]
  - HYPOPHAGIA [None]
  - OVERDOSE [None]
